FAERS Safety Report 24318388 (Version 2)
Quarter: 2024Q3

REPORT INFORMATION
  Report Type: Spontaneous
  Country: BR (occurrence: BR)
  Receive Date: 20240913
  Receipt Date: 20240924
  Transmission Date: 20241017
  Serious: Yes (Other)
  Sender: TAKEDA
  Company Number: BR-TAKEDA-2024TUS090725

PATIENT

DRUGS (1)
  1. LISDEXAMFETAMINE DIMESYLATE [Suspect]
     Active Substance: LISDEXAMFETAMINE DIMESYLATE
     Indication: Product used for unknown indication
     Dosage: UNK
     Route: 065

REACTIONS (9)
  - Loss of consciousness [Unknown]
  - Adjustment disorder [Unknown]
  - Poor quality sleep [Unknown]
  - Feeling of despair [Unknown]
  - Sensory disturbance [Unknown]
  - Memory impairment [Unknown]
  - Therapeutic response shortened [Unknown]
  - Depressed mood [Unknown]
  - Insomnia [Unknown]
